FAERS Safety Report 8016899-6 (Version None)
Quarter: 2012Q1

REPORT INFORMATION
  Report Type: 
  Country: None (occurrence: None)
  Receive Date: 20120102
  Receipt Date: 20111220
  Transmission Date: 20120608
  Serious: Yes (Other)
  Sender: FDA-Public Use
  Company Number: PHHY2011CA52162

PATIENT
  Sex: Male

DRUGS (2)
  1. SANDOSTATIN [Suspect]
     Indication: NEUROENDOCRINE TUMOUR
     Dosage: 40 MG, QW4
     Route: 030
     Dates: start: 20080808
  2. AFINITOR [Suspect]
     Indication: NEUROENDOCRINE TUMOUR
     Dosage: 10 MG, QD
     Route: 048
     Dates: start: 20110514

REACTIONS (5)
  - RASH [None]
  - CONTUSION [None]
  - OEDEMA PERIPHERAL [None]
  - ASTHENIA [None]
  - ECCHYMOSIS [None]
